FAERS Safety Report 9196756 (Version 1)
Quarter: 2013Q1

REPORT INFORMATION
  Report Type: Report from Study
  Country: DE (occurrence: DE)
  Receive Date: 20130328
  Receipt Date: 20130328
  Transmission Date: 20140127
  Serious: Yes (Death, Hospitalization)
  Sender: FDA-Public Use
  Company Number: DE-009507513-1303DEU008708

PATIENT
  Age: 56 Year
  Sex: Male
  Weight: 120 kg

DRUGS (12)
  1. VICTRELIS [Suspect]
     Indication: CHRONIC HEPATITIS C
     Dosage: 2400 MG, QD
     Route: 048
     Dates: start: 201210
  2. PEGASYS [Suspect]
     Indication: CHRONIC HEPATITIS C
     Dosage: 180 MICROGRAM, QW
     Route: 058
     Dates: start: 20120909
  3. PEGASYS [Suspect]
     Dosage: 135 MICROGRAM, QW
     Route: 058
  4. REBETOL [Suspect]
     Indication: CHRONIC HEPATITIS C
     Dosage: 600 MG, QD
     Route: 048
     Dates: start: 20120909
  5. CIPRALEX [Concomitant]
     Dosage: 40 MG, UNK
     Route: 048
  6. SEROQUEL [Concomitant]
     Dosage: 100 MG, UNK
     Route: 048
  7. BELOC-ZOK [Concomitant]
     Indication: HYPERTENSION
     Dosage: 95 MG, UNK
     Route: 048
  8. DICLOFENAC [Concomitant]
     Dosage: 2 DF, UNK
  9. LEVOTHYROXINE SODIUM [Concomitant]
     Dosage: 75 MICROGRAM, QD
  10. PANTOPRAZOLE [Concomitant]
     Dosage: 40 MG, BID
  11. SODIUM PICOSULFATE [Concomitant]
     Dosage: 3000 IU
  12. CERTOPARIN SODIUM [Concomitant]

REACTIONS (15)
  - Road traffic accident [Fatal]
  - Obstructive airways disorder [Not Recovered/Not Resolved]
  - Rib fracture [Unknown]
  - Spinal fracture [Unknown]
  - Brain oedema [Unknown]
  - Respiratory failure [Fatal]
  - Ascites [Unknown]
  - Renal failure [Not Recovered/Not Resolved]
  - Sepsis [Unknown]
  - Brain abscess [Unknown]
  - Pleural effusion [Unknown]
  - Respiratory failure [Not Recovered/Not Resolved]
  - Cardiogenic shock [Unknown]
  - Acute hepatic failure [Fatal]
  - Renal failure acute [Fatal]
